FAERS Safety Report 5678613-9 (Version None)
Quarter: 2008Q1

REPORT INFORMATION
  Report Type: 
  Country: None (occurrence: None)
  Receive Date: 20080325
  Receipt Date: 20080320
  Transmission Date: 20080703
  Serious: Yes (Hospitalization)
  Sender: FDA-Public Use
  Company Number: US-KINGPHARMUSA00001-K200800148

PATIENT

DRUGS (15)
  1. SEPTRA [Suspect]
     Indication: HIV INFECTION
     Dosage: 960 MG, THREE IN ONE WEEK
     Route: 048
     Dates: start: 19960101, end: 20080104
  2. MARAVIROC [Suspect]
     Indication: HIV INFECTION
     Dosage: 150 MG, BID
     Route: 048
     Dates: start: 20071215, end: 20080108
  3. MARAVIROC [Suspect]
     Dosage: 300 MG, BID
     Route: 048
     Dates: start: 20080215
  4. PREZISTA [Suspect]
     Indication: HIV INFECTION
     Dosage: 600 MG, BID
     Route: 048
     Dates: start: 20071215, end: 20080104
  5. RITONAVIR [Concomitant]
     Route: 048
     Dates: start: 19970204, end: 20080104
  6. RITONAVIR [Concomitant]
     Dates: start: 20080215
  7. RALTEGRAVIR [Concomitant]
     Route: 048
     Dates: start: 20071215, end: 20080108
  8. RALTEGRAVIR [Concomitant]
     Dates: start: 20080215
  9. LAMIVUDINE [Concomitant]
     Dosage: UNK, UNK
     Route: 048
     Dates: start: 19970207, end: 20080108
  10. LAMIVUDINE [Concomitant]
     Dates: start: 20080215
  11. TIPRANAVIR [Concomitant]
     Dates: start: 20080215
  12. ATORVASTATIN CALCIUM [Concomitant]
     Route: 048
  13. OMACOR     /01403701/ [Concomitant]
     Route: 048
  14. MULTIVITAMIN    /00831701/ [Concomitant]
     Route: 048
  15. ASPIRIN [Concomitant]
     Route: 048

REACTIONS (10)
  - ABDOMINAL DISTENSION [None]
  - COUGH [None]
  - DYSPHAGIA [None]
  - DYSPNOEA [None]
  - HOSPITALISATION [None]
  - NAUSEA [None]
  - PYREXIA [None]
  - RASH GENERALISED [None]
  - STEVENS-JOHNSON SYNDROME [None]
  - WEIGHT DECREASED [None]
